FAERS Safety Report 18530780 (Version 1)
Quarter: 2020Q4

REPORT INFORMATION
  Report Type: Other
  Country: US (occurrence: US)
  Receive Date: 20201121
  Receipt Date: 20201121
  Transmission Date: 20210114
  Serious: Yes (Other)
  Sender: FDA-Public Use
  Company Number: US-ROCHE-2717106

PATIENT
  Age: 23 Year
  Sex: Male

DRUGS (2)
  1. POSACONAZOLE [Concomitant]
     Active Substance: POSACONAZOLE
  2. TOCILIZUMAB. [Suspect]
     Active Substance: TOCILIZUMAB
     Indication: CYTOKINE RELEASE SYNDROME
     Route: 065

REACTIONS (1)
  - Fusarium infection [Unknown]
